FAERS Safety Report 9872097 (Version 2)
Quarter: 2014Q1

REPORT INFORMATION
  Report Type: Spontaneous
  Country: US (occurrence: US)
  Receive Date: 20140205
  Receipt Date: 20140205
  Transmission Date: 20141002
  Serious: No
  Sender: FDA-Public Use
  Company Number: US-ALLERGAN-1307073US

PATIENT
  Sex: Female

DRUGS (5)
  1. BOTOX COSMETIC [Suspect]
     Indication: SKIN WRINKLING
     Dosage: 10 UNITS, SINGLE
     Route: 030
     Dates: start: 20130423, end: 20130423
  2. BOTOX COSMETIC [Suspect]
     Indication: SKIN WRINKLING
     Dosage: 10 UNK, UNK
     Route: 030
     Dates: start: 20130423, end: 20130423
  3. BOTOX COSMETIC [Suspect]
     Indication: SKIN WRINKLING
     Dosage: 20 UNK, UNK
     Route: 030
     Dates: start: 20130423, end: 20130423
  4. BOTOX COSMETIC [Suspect]
     Dosage: 10 UNK, UNK
     Route: 030
     Dates: start: 20130423, end: 20130423
  5. ANESTHETIC NOS [Concomitant]
     Indication: PRODUCT USED FOR UNKNOWN INDICATION
     Route: 042

REACTIONS (1)
  - Eyelid ptosis [Recovering/Resolving]
